FAERS Safety Report 8961025 (Version 1)
Quarter: 2012Q4

REPORT INFORMATION
  Report Type: 
  Country: US (occurrence: US)
  Receive Date: 20121212
  Receipt Date: 20121212
  Transmission Date: 20130627
  Serious: Yes (Hospitalization)
  Sender: FDA-Public Use
  Company Number: US-ACTELION-A-US2012-76195

PATIENT
  Age: 36 Year
  Sex: Male

DRUGS (4)
  1. VENTAVIS [Suspect]
     Indication: PULMONARY ARTERIAL HYPERTENSION
     Dosage: UNK
     Route: 055
  2. ADCIRCA [Concomitant]
  3. ASPIRIN [Concomitant]
  4. COUMADIN [Concomitant]

REACTIONS (1)
  - Pneumothorax [Unknown]
